FAERS Safety Report 9921505 (Version 1)
Quarter: 2014Q1

REPORT INFORMATION
  Report Type: Spontaneous
  Country: US (occurrence: US)
  Receive Date: 20140225
  Receipt Date: 20140225
  Transmission Date: 20141002
  Serious: No
  Sender: FDA-Public Use
  Company Number: US-PFIZER INC-2014049994

PATIENT
  Sex: Female

DRUGS (5)
  1. LYRICA [Suspect]
     Indication: ANXIETY
     Dosage: 25 MG, 2X/DAY
  2. LYRICA [Suspect]
     Indication: AFFECTIVE DISORDER
     Dosage: 50 MG, 2X/DAY
  3. LYRICA [Suspect]
     Dosage: 75 MG, 2X/DAY
  4. LYRICA [Suspect]
     Dosage: 75 MG (25MG IN THE MORNING AND 50MG DURING NIGHT), DAILY
  5. XANAX [Concomitant]
     Dosage: UNK

REACTIONS (3)
  - Therapeutic response unexpected [Unknown]
  - Psychomotor hyperactivity [Unknown]
  - Drug ineffective for unapproved indication [Unknown]
